FAERS Safety Report 21341333 (Version 2)
Quarter: 2023Q4

REPORT INFORMATION
  Report Type: Spontaneous
  Country: US (occurrence: US)
  Receive Date: 20220916
  Receipt Date: 20231011
  Transmission Date: 20240110
  Serious: Yes (Other)
  Sender: FDA-Public Use
  Company Number: US-SANOFI-01272577

PATIENT
  Age: 78 Year
  Sex: Female

DRUGS (2)
  1. LANTUS SOLOSTAR [Suspect]
     Active Substance: INSULIN GLARGINE
     Indication: Type 2 diabetes mellitus
     Dosage: 15 IU, QD
  2. LANTUS SOLOSTAR [Suspect]
     Active Substance: INSULIN GLARGINE
     Dosage: 17 IU, QD

REACTIONS (12)
  - Cataract [Not Recovered/Not Resolved]
  - Injection site haemorrhage [Unknown]
  - Injection site bruising [Unknown]
  - Eye laser scar [Unknown]
  - Migraine [Unknown]
  - Illness [Unknown]
  - Peroneal nerve palsy [Unknown]
  - Dyspepsia [Unknown]
  - Limb discomfort [Unknown]
  - Visual impairment [Unknown]
  - Blood glucose increased [Unknown]
  - Product dispensing error [Unknown]
